FAERS Safety Report 15264837 (Version 1)
Quarter: 2018Q3

REPORT INFORMATION
  Report Type: Spontaneous
  Country: US (occurrence: US)
  Receive Date: 20180723
  Receipt Date: 20180723
  Transmission Date: 20181010
  Serious: No
  Sender: FDA-Public Use
  Company Number: None

PATIENT
  Age: 28 Year
  Sex: Female
  Weight: 62.1 kg

DRUGS (1)
  1. AIMOVIG [Suspect]
     Active Substance: ERENUMAB-AOOE
     Indication: MIGRAINE
     Dosage: ?          QUANTITY:1 INJECTION(S);OTHER FREQUENCY:1 TIME PER MONTH;?
     Route: 058
     Dates: start: 20180718

REACTIONS (16)
  - Feeling of body temperature change [None]
  - Arthralgia [None]
  - Insomnia [None]
  - Fatigue [None]
  - Diarrhoea [None]
  - Abdominal pain [None]
  - Heart rate irregular [None]
  - Neck pain [None]
  - Joint noise [None]
  - Musculoskeletal stiffness [None]
  - Decreased appetite [None]
  - Dizziness [None]
  - Blood pressure fluctuation [None]
  - Headache [None]
  - Dyspnoea [None]
  - Musculoskeletal pain [None]

NARRATIVE: CASE EVENT DATE: 20180720
